FAERS Safety Report 4423728-6 (Version None)
Quarter: 2004Q3

REPORT INFORMATION
  Report Type: 
  Country: None (occurrence: None)
  Receive Date: 20040811
  Receipt Date: 20040705
  Transmission Date: 20050211
  Serious: No
  Sender: FDA-Public Use
  Company Number: CH-MERCK-0407CHE00013

PATIENT
  Age: 23 Year
  Sex: Male
  Weight: 64 kg

DRUGS (7)
  1. ACYCLOVIR [Concomitant]
     Indication: INFECTION PROPHYLAXIS
     Route: 051
     Dates: start: 20040615, end: 20040705
  2. CANCIDAS [Suspect]
     Indication: INFECTION PROPHYLAXIS
     Route: 042
     Dates: start: 20040628, end: 20040629
  3. CEFEPIME [Concomitant]
     Indication: INFECTION PROPHYLAXIS
     Route: 051
     Dates: start: 20040621
  4. LORATADINE [Concomitant]
     Route: 048
     Dates: start: 20040624, end: 20040701
  5. METRONIDAZOLE [Concomitant]
     Indication: INFECTION PROPHYLAXIS
     Route: 041
     Dates: start: 20040624, end: 20040703
  6. OMEPRAZOLE [Concomitant]
     Indication: PROPHYLAXIS AGAINST GASTROINTESTINAL ULCER
     Route: 048
     Dates: start: 20040622, end: 20040702
  7. TEICOPLANIN [Concomitant]
     Indication: INFECTION PROPHYLAXIS
     Route: 051
     Dates: start: 20040621, end: 20040630

REACTIONS (1)
  - DERMATITIS EXFOLIATIVE [None]
